FAERS Safety Report 4280168-0 (Version None)
Quarter: 2004Q1

REPORT INFORMATION
  Report Type: 
  Country: None (occurrence: None)
  Receive Date: 20040126
  Receipt Date: 20040113
  Transmission Date: 20041129
  Serious: Yes (Hospitalization)
  Sender: FDA-Public Use
  Company Number: A124796

PATIENT
  Age: 46 Year
  Sex: Female
  Weight: 63.5036 kg

DRUGS (11)
  1. GEODON [Suspect]
     Indication: SCHIZOPHRENIA
     Dosage: 80 MG (BID), ORAL
     Route: 048
     Dates: start: 20010801
  2. OLANZAPINE [Suspect]
     Indication: SCHIZOPHRENIA
  3. VALPROATE SODIUM [Suspect]
     Indication: CONVULSION
     Dosage: ORAL
     Route: 048
  4. LAMOTRIGINE [Suspect]
     Indication: MOOD SWINGS
     Dosage: 250 MG (BID), ORAL
     Route: 048
  5. DIPHENHYDRAMINE HCL [Concomitant]
  6. CALCIUM (CALCIUM) [Concomitant]
  7. LEVOTHYROXINE (LEVOTHYUROXINE) [Concomitant]
  8. TOLTERODINE L-TARTRATE (TOLTERODINE L-TARTRATE) [Concomitant]
  9. CALCITRIOL [Concomitant]
  10. RISPERIDONE [Concomitant]
  11. QUETIAPINE FUMARATE (QUETIAPINE FUMARATE) [Concomitant]

REACTIONS (30)
  - AGITATION [None]
  - ANGER [None]
  - BLOOD CHOLESTEROL INCREASED [None]
  - BURNING SENSATION [None]
  - CHEST PAIN [None]
  - CONSTIPATION [None]
  - DIFFICULTY IN WALKING [None]
  - FATIGUE [None]
  - FEAR [None]
  - HEART RATE DECREASED [None]
  - HEART RATE INCREASED [None]
  - HOSTILITY [None]
  - INSOMNIA [None]
  - MUSCLE TIGHTNESS [None]
  - MUSCULOSKELETAL STIFFNESS [None]
  - NAUSEA [None]
  - NIGHTMARE [None]
  - PALPITATIONS [None]
  - PERSONALITY CHANGE [None]
  - PHOBIA [None]
  - PHYSICAL ASSAULT [None]
  - RASH [None]
  - RASH ERYTHEMATOUS [None]
  - RHINORRHOEA [None]
  - SOMNOLENCE [None]
  - SPEECH DISORDER [None]
  - STUPOR [None]
  - SWELLING [None]
  - TENSION [None]
  - TREMOR [None]
